FAERS Safety Report 13225387 (Version 1)
Quarter: 2017Q1

REPORT INFORMATION
  Report Type: Spontaneous
  Country: US (occurrence: US)
  Receive Date: 20170210
  Receipt Date: 20170210
  Transmission Date: 20170428
  Serious: No
  Sender: FDA-Public Use
  Company Number: None

PATIENT
  Age: 61 Year
  Sex: Male

DRUGS (4)
  1. OCALIVA [Suspect]
     Active Substance: OBETICHOLIC ACID
     Indication: CHOLANGITIS
     Route: 048
     Dates: start: 20170117
  2. FAMOTIDINE. [Concomitant]
     Active Substance: FAMOTIDINE
  3. FINASTERIDE. [Concomitant]
     Active Substance: FINASTERIDE
  4. FLOMAX [Concomitant]
     Active Substance: TAMSULOSIN HYDROCHLORIDE

REACTIONS (1)
  - Pruritus [None]

NARRATIVE: CASE EVENT DATE: 201701
